FAERS Safety Report 5561818-5 (Version None)
Quarter: 2007Q4

REPORT INFORMATION
  Report Type: 
  Country: None (occurrence: None)
  Receive Date: 20071215
  Receipt Date: 20071009
  Transmission Date: 20080405
  Serious: No
  Sender: FDA-Public Use
  Company Number: US-AMGEN-KDL246113

PATIENT
  Sex: Female
  Weight: 70.4 kg

DRUGS (12)
  1. ENBREL [Suspect]
     Indication: ANKYLOSING SPONDYLITIS
     Route: 058
     Dates: start: 20060215
  2. ENBREL [Suspect]
     Indication: PSORIATIC ARTHROPATHY
  3. METHOTREXATE [Concomitant]
     Route: 048
     Dates: start: 20040101
  4. METHADONE HCL [Concomitant]
  5. LORAZEPAM [Concomitant]
  6. LISINOPRIL [Concomitant]
  7. HYDROCHLOROTHIAZIDE [Concomitant]
  8. AZMACORT [Concomitant]
  9. FOLIC ACID [Concomitant]
  10. ALBUTEROL [Concomitant]
  11. ESTRADIOL [Concomitant]
  12. IMODIUM [Concomitant]

REACTIONS (5)
  - EROSIVE OESOPHAGITIS [None]
  - INJECTION SITE PAIN [None]
  - INTERVERTEBRAL DISC DEGENERATION [None]
  - OSTEOARTHRITIS [None]
  - SPINAL OSTEOARTHRITIS [None]
